FAERS Safety Report 7803089-2 (Version None)
Quarter: 2011Q4

REPORT INFORMATION
  Report Type: 
  Country: None (occurrence: None)
  Receive Date: 20111007
  Receipt Date: 20111005
  Transmission Date: 20120403
  Serious: Yes (Hospitalization)
  Sender: FDA-Public Use
  Company Number: JP-EISAI INC-E2090-01641-SPO-JP

PATIENT
  Sex: Male

DRUGS (1)
  1. ZONISAMIDE [Suspect]
     Dosage: 300 MG DAILY
     Route: 048
     Dates: start: 20110403, end: 20110607

REACTIONS (1)
  - DRUG ERUPTION [None]
